FAERS Safety Report 4747483-5 (Version None)
Quarter: 2005Q3

REPORT INFORMATION
  Report Type: 
  Country: None (occurrence: None)
  Receive Date: 20050815
  Receipt Date: 20050422
  Transmission Date: 20060218
  Serious: No
  Sender: FDA-Public Use
  Company Number: USA050496393

PATIENT
  Age: 84 Year
  Sex: Male
  Weight: 86 kg

DRUGS (3)
  1. CIALIS [Suspect]
     Indication: ERECTILE DYSFUNCTION
     Dosage: 20 MG
  2. ACETAMINOPHEN/DIPHENHYDRAMINE [Concomitant]
  3. NAPROXEN SODIUM [Concomitant]

REACTIONS (1)
  - THERAPEUTIC RESPONSE DELAYED [None]
